FAERS Safety Report 5230803-5 (Version None)
Quarter: 2007Q1

REPORT INFORMATION
  Report Type: 
  Country: None (occurrence: None)
  Receive Date: 20070202
  Receipt Date: 20070123
  Transmission Date: 20070707
  Serious: Yes (Death)
  Sender: FDA-Public Use
  Company Number: GXKR2007ES00808

PATIENT
  Age: 18 Year
  Sex: 0

DRUGS (2)
  1. DICLOFENAC (NGX) (DICLOFENAC) UNKNOWN [Suspect]
     Indication: DRUG USE FOR UNKNOWN INDICATION
     Dosage: INTRAVENOUS
     Route: 042
  2. DIPYRONE (METAMIZOLE SODIUM) [Concomitant]

REACTIONS (1)
  - ANAPHYLACTIC SHOCK [None]
